FAERS Safety Report 20859521 (Version 3)
Quarter: 2025Q1

REPORT INFORMATION
  Report Type: Other
  Country: AU (occurrence: AU)
  Receive Date: 20220523
  Receipt Date: 20250304
  Transmission Date: 20250409
  Serious: No
  Sender: TOLMAR
  Company Number: AU-TOLMAR, INC.-22AU033994

PATIENT
  Sex: Male

DRUGS (1)
  1. ELIGARD [Suspect]
     Active Substance: LEUPROLIDE ACETATE
     Indication: Prostate cancer
     Dosage: 22.5 MILLIGRAM, Q 3 MONTH

REACTIONS (5)
  - Malaise [Unknown]
  - Weight increased [Unknown]
  - Hot flush [Recovered/Resolved]
  - Fatigue [Unknown]
  - Hot flush [Unknown]
